FAERS Safety Report 7378496-5 (Version None)
Quarter: 2011Q1

REPORT INFORMATION
  Report Type: 
  Country: None (occurrence: None)
  Receive Date: 20110323
  Receipt Date: 20110323
  Transmission Date: 20110831
  Serious: Yes (Disabling)
  Sender: FDA-Public Use
  Company Number: None

PATIENT
  Sex: Female
  Weight: 60 kg

DRUGS (1)
  1. CEFTAZIDIME [Suspect]
     Indication: BRONCHIECTASIS
     Dosage: 2 G Q 8 HOURS IV
     Route: 042
     Dates: start: 20110221, end: 20110221

REACTIONS (2)
  - URTICARIA [None]
  - VOMITING [None]
